FAERS Safety Report 24397849 (Version 6)
Quarter: 2025Q1

REPORT INFORMATION
  Report Type: Spontaneous
  Country: US (occurrence: US)
  Receive Date: 20241004
  Receipt Date: 20250121
  Transmission Date: 20250408
  Serious: No
  Sender: PFIZER
  Company Number: US-PFIZER INC-202400262396

PATIENT
  Age: 74 Year
  Sex: Male

DRUGS (4)
  1. BOSULIF [Suspect]
     Active Substance: BOSUTINIB MONOHYDRATE
     Indication: Chronic myeloid leukaemia
  2. BOSULIF [Suspect]
     Active Substance: BOSUTINIB MONOHYDRATE
     Dosage: 200 MG, 1X/DAY (2 TABLETS BY MOUTH ONCE DAILY WITH BREAKFAST)
     Route: 048
  3. BOSULIF [Suspect]
     Active Substance: BOSUTINIB MONOHYDRATE
     Dosage: 100 MG, 2X/DAY (TWICE A DAY)
  4. BOSULIF [Suspect]
     Active Substance: BOSUTINIB MONOHYDRATE
     Dosage: 300 MG, DAILY (TAKE 3 TABLETS DAILY WITH BREAKFAST)
     Route: 048
     Dates: start: 2024

REACTIONS (2)
  - Creatinine renal clearance decreased [Unknown]
  - Off label use [Unknown]
